FAERS Safety Report 4464900-9 (Version None)
Quarter: 2004Q4

REPORT INFORMATION
  Report Type: 
  Country: None (occurrence: None)
  Receive Date: 20041004
  Receipt Date: 20040204
  Transmission Date: 20050328
  Serious: No
  Sender: FDA-Public Use
  Company Number: 361809

PATIENT
  Age: 56 Year
  Sex: Male

DRUGS (6)
  1. COREG [Suspect]
     Dosage: 25MG TWICE PER DAY
     Route: 048
     Dates: start: 20020901
  2. DIOVAN [Concomitant]
  3. LIPITOR [Concomitant]
  4. POTASSIUM [Concomitant]
  5. DIGITEK [Concomitant]
     Route: 065
  6. FUROSEMIDE [Concomitant]

REACTIONS (1)
  - PRODUCTIVE COUGH [None]
